FAERS Safety Report 8891354 (Version 1)
Quarter: 2012Q4

REPORT INFORMATION
  Report Type: Spontaneous
  Country: US (occurrence: None)
  Receive Date: 20121102
  Receipt Date: 20121102
  Transmission Date: 20130627
  Serious: No
  Sender: FDA-Public Use
  Company Number: None

PATIENT
  Age: 10 Year
  Sex: Female
  Weight: 38.01 kg

DRUGS (2)
  1. OLANZAPINE (OLANZAPINE) [Suspect]
     Indication: BIPOLAR DISORDER
     Dosage: 10mg BID PRN PO
(started with 5mg BIW)
     Route: 048
     Dates: start: 20120808
  2. OLANZAPINE (OLANZAPINE) [Suspect]
     Indication: ASPERGER^S DISORDER
     Dosage: 10mg BID PRN PO
(started with 5mg BIW)
     Route: 048
     Dates: start: 20120808

REACTIONS (2)
  - Aggression [None]
  - Aggression [None]
